FAERS Safety Report 6147423-0 (Version None)
Quarter: 2009Q2

REPORT INFORMATION
  Report Type: 
  Country: None (occurrence: None)
  Receive Date: 20090406
  Receipt Date: 20090209
  Transmission Date: 20091009
  Serious: No
  Sender: FDA-Public Use
  Company Number: AE-209-041

PATIENT
  Sex: Female

DRUGS (1)
  1. LIDODERM [Suspect]
     Indication: PIRIFORMIS SYNDROME
     Dates: start: 20060601

REACTIONS (2)
  - URINARY RETENTION [None]
  - URINARY TRACT INFECTION [None]
